FAERS Safety Report 13918431 (Version 1)
Quarter: 2017Q3

REPORT INFORMATION
  Report Type: Spontaneous
  Country: US (occurrence: US)
  Receive Date: 20170829
  Receipt Date: 20170829
  Transmission Date: 20171127
  Serious: No
  Sender: FDA-Public Use
  Company Number: US-SA-2017SA009695

PATIENT
  Sex: Female

DRUGS (2)
  1. IRBESARTAN WINTHROP [Suspect]
     Active Substance: IRBESARTAN
     Route: 065
     Dates: start: 2015
  2. AVAPRO [Concomitant]
     Active Substance: IRBESARTAN

REACTIONS (1)
  - Platelet count decreased [Unknown]

NARRATIVE: CASE EVENT DATE: 2015
